FAERS Safety Report 8404020 (Version 4)
Quarter: 2014Q1

REPORT INFORMATION
  Report Type: Spontaneous
  Country: US (occurrence: None)
  Receive Date: 20111227
  Receipt Date: 20130107
  Transmission Date: 20141002
  Serious: Yes (Other)
  Sender: FDA-Public Use
  Company Number: PHEH2011US008641

PATIENT
  Age: 37 Year
  Sex: Female
  Weight: 84.1 kg

DRUGS (10)
  1. GILENYA [Suspect]
     Indication: RELAPSING-REMITTING MULTIPLE SCLEROSIS
     Dosage: 0.5 MG, QD, ORAL
     Route: 048
     Dates: start: 20110311, end: 20120117
  2. BACLOFEN [Suspect]
     Indication: MUSCLE SPASTICITY
     Dosage: 20 MG, TID, ORAL
     Route: 048
     Dates: start: 20110927
  3. PROZAC [Concomitant]
  4. ZANAFLEX [Concomitant]
  5. NEURONTIN [Concomitant]
  6. REMERON [Concomitant]
  7. VITAMIN D3 (COLECALCIFEROL) [Concomitant]
  8. IBUPROFEN (IBUPROFEN) [Concomitant]
  9. VITAMIN D (ERGOCALCIFEROL) [Concomitant]
  10. SOMA [Concomitant]

REACTIONS (5)
  - Liver function test abnormal [None]
  - Blood lactate dehydrogenase increased [None]
  - Alanine aminotransferase increased [None]
  - Blood alkaline phosphatase increased [None]
  - Aspartate aminotransferase increased [None]
